FAERS Safety Report 8244935-0 (Version None)
Quarter: 2012Q1

REPORT INFORMATION
  Report Type: 
  Country: None (occurrence: None)
  Receive Date: 20120329
  Receipt Date: 20110923
  Transmission Date: 20120608
  Serious: Yes (Other)
  Sender: FDA-Public Use
  Company Number: US-MYLANLABS-2011S1020070

PATIENT
  Age: 41 Year
  Sex: Male

DRUGS (3)
  1. FENTANYL-100 [Suspect]
     Route: 062
     Dates: start: 20100201
  2. VICODIN [Concomitant]
     Indication: PAIN
  3. FENTANYL-100 [Suspect]
     Indication: PAIN
     Route: 062
     Dates: start: 20100101, end: 20100201

REACTIONS (2)
  - ASTHENIA [None]
  - DRUG DEPENDENCE [None]
